FAERS Safety Report 8954767 (Version 1)
Quarter: 2012Q4

REPORT INFORMATION
  Report Type: Spontaneous
  Country: GB (occurrence: None)
  Receive Date: 20121130
  Receipt Date: 20121130
  Transmission Date: 20130627
  Serious: Yes (Death)
  Sender: FDA-Public Use
  Company Number: FK201203461

PATIENT
  Age: 73 Year
  Sex: Male
  Weight: 67.3 kg

DRUGS (6)
  1. GEMCITABINE (MANUFACTURER UNKNOWN) (GEMCITABINE) (GEMCITABINE) [Suspect]
     Indication: PANCREATIC CARCINOMA
     Dates: start: 20120507, end: 20120907
  2. BISOPROLOL (BISOPROLOL) [Concomitant]
  3. CREON (PANCREATIN) [Concomitant]
  4. GRANISETRON (GRANISETRON) [Concomitant]
  5. LOPERAMIDE (LOPERAMIDE) [Concomitant]
  6. WARFARIN (WARFARIN) [Concomitant]

REACTIONS (5)
  - Dyspnoea [None]
  - Ischaemia [None]
  - Pneumonitis [None]
  - Thrombosis [None]
  - Malaise [None]
